FAERS Safety Report 22665458 (Version 2)
Quarter: 2023Q4

REPORT INFORMATION
  Report Type: Spontaneous
  Country: IN (occurrence: IN)
  Receive Date: 20230703
  Receipt Date: 20231006
  Transmission Date: 20240110
  Serious: Yes (Other)
  Sender: FDA-Public Use
  Company Number: IN-SUN PHARMACEUTICAL INDUSTRIES LTD-2023R1-381622

PATIENT
  Age: 28 Year
  Sex: Male

DRUGS (2)
  1. RISPERIDONE [Suspect]
     Active Substance: RISPERIDONE
     Indication: Antipsychotic therapy
     Dosage: UNK
     Route: 065
  2. EPHEDRINE [Concomitant]
     Active Substance: EPHEDRINE
     Indication: Allergic sinusitis
     Dosage: UNK
     Route: 065

REACTIONS (2)
  - Overdose [Unknown]
  - Priapism [Unknown]
